FAERS Safety Report 22057873 (Version 2)
Quarter: 2023Q1

REPORT INFORMATION
  Report Type: Report from Study
  Country: CN (occurrence: None)
  Receive Date: 20230303
  Receipt Date: 20230315
  Transmission Date: 20230417
  Serious: Yes (Hospitalization)
  Sender: FDA-Public Use
  Company Number: CN-ROCHE-3206512

PATIENT
  Age: 64 Year
  Sex: Female
  Weight: 66 kg

DRUGS (21)
  1. ATEZOLIZUMAB [Suspect]
     Active Substance: ATEZOLIZUMAB
     Indication: Small cell lung cancer extensive stage
     Dosage: ON 23/SEP/2022, RECEIVED MOST RECENT DOSE OF ATEZOLIZUMAB PRIOR TO SERIOUS ADVERSE EVENT (SAE)
     Route: 041
     Dates: start: 20211011, end: 20220923
  2. ETOPOSIDE [Suspect]
     Active Substance: ETOPOSIDE
     Indication: Small cell lung cancer extensive stage
     Dosage: ON 18/DEC/2021, RECEIVED MOST RECENT DOSE OF ETOPOSIDE PRIOR TO SERIOUS ADVERSE EVENT (SAE)
     Route: 042
     Dates: start: 20211011
  3. CARBOPLATIN [Suspect]
     Active Substance: CARBOPLATIN
     Indication: Small cell lung cancer extensive stage
     Dosage: ON 16/DEC/2021, RECEIVED MOST RECENT DOSE OF CARBOPLATIN PRIOR TO SERIOUS ADVERSE EVENT (SAE)
     Route: 042
     Dates: start: 20211011
  4. AMLODIPINE BESYLATE [Concomitant]
     Active Substance: AMLODIPINE BESYLATE
     Dates: start: 20210920
  5. QING YAN DI WAN [Concomitant]
     Dates: start: 20211031
  6. QING YAN DI WAN [Concomitant]
     Dates: start: 20220221, end: 2022
  7. LEUCOGEN TABLETS [Concomitant]
     Dates: start: 20220112, end: 2022
  8. ONDANSETRON HYDROCHLORIDE [Concomitant]
     Active Substance: ONDANSETRON HYDROCHLORIDE
     Dates: start: 20220112
  9. LEVOTHYROXINE SODIUM [Concomitant]
     Active Substance: LEVOTHYROXINE SODIUM
     Dates: start: 20220219
  10. LEVOTHYROXINE SODIUM [Concomitant]
     Active Substance: LEVOTHYROXINE SODIUM
     Dates: start: 20220604, end: 20221111
  11. LEVOFLOXACIN [Concomitant]
     Active Substance: LEVOFLOXACIN
     Dates: start: 20220818
  12. VITAMIN C [Concomitant]
     Active Substance: ASCORBIC ACID
     Dates: start: 20220923, end: 20220923
  13. RE LIN QING [Concomitant]
     Dates: start: 20220916
  14. IBUPROFEN [Concomitant]
     Active Substance: IBUPROFEN
     Indication: Analgesic therapy
     Dates: start: 20221020
  15. SAN AO PIAN [Concomitant]
     Dates: start: 20220106, end: 2022
  16. LORATADINE [Concomitant]
     Active Substance: LORATADINE
     Dates: start: 20220628
  17. MONTELUKAST SODIUM [Concomitant]
     Active Substance: MONTELUKAST SODIUM
     Dosage: OTHER
     Dates: start: 20220106, end: 2022
  18. OMEPRAZOLE [Concomitant]
     Active Substance: OMEPRAZOLE
     Dates: start: 20221114, end: 202212
  19. ALPRAZOLAM [Concomitant]
     Active Substance: ALPRAZOLAM
     Dosage: OTHER
     Dates: start: 20221114, end: 202212
  20. LEVOTHYROXINE SODIUM [Concomitant]
     Active Substance: LEVOTHYROXINE SODIUM
     Dates: start: 20221114, end: 202212
  21. CALTRATE [Concomitant]
     Active Substance: CALCIUM CARBONATE
     Dosage: DF=TABLET
     Dates: start: 20221114, end: 202212

REACTIONS (1)
  - Urogenital fistula [Not Recovered/Not Resolved]

NARRATIVE: CASE EVENT DATE: 20221024
